FAERS Safety Report 8195634-5 (Version None)
Quarter: 2012Q1

REPORT INFORMATION
  Report Type: 
  Country: None (occurrence: None)
  Receive Date: 20120308
  Receipt Date: 20120305
  Transmission Date: 20120608
  Serious: Yes (Other)
  Sender: FDA-Public Use
  Company Number: US-PFIZER INC-2012058858

PATIENT
  Sex: Female

DRUGS (6)
  1. LYRICA [Suspect]
     Dosage: 150 MG, 1X/DAY
     Dates: start: 20120301
  2. ACETYLSALICYLIC ACID [Concomitant]
     Dosage: UNK
  3. LYRICA [Suspect]
     Dosage: 150 MG, 2X/DAY
     Dates: end: 20120301
  4. IBUPROFEN [Concomitant]
     Dosage: UNK
  5. ROPINIROLE [Concomitant]
     Indication: SLEEP APNOEA SYNDROME
  6. ROPINIROLE [Concomitant]
     Indication: RESTLESS LEGS SYNDROME
     Dosage: UNK

REACTIONS (5)
  - PAIN [None]
  - MENTAL IMPAIRMENT [None]
  - INJURY [None]
  - GAIT DISTURBANCE [None]
  - BALANCE DISORDER [None]
